FAERS Safety Report 10388649 (Version 2)
Quarter: 2015Q1

REPORT INFORMATION
  Report Type: Report from Study
  Country: US (occurrence: US)
  Receive Date: 20140815
  Receipt Date: 20150310
  Transmission Date: 20150720
  Serious: No
  Sender: FDA-Public Use
  Company Number: US-GILEAD-2014-0112093

PATIENT
  Age: 61 Year
  Sex: Female

DRUGS (4)
  1. AMBRISENTAN [Suspect]
     Active Substance: AMBRISENTAN
     Indication: PULMONARY HYPERTENSION
     Dosage: 5 MG, QD
     Route: 065
     Dates: start: 20130426
  2. AMBRISENTAN [Suspect]
     Active Substance: AMBRISENTAN
     Indication: CHRONIC OBSTRUCTIVE PULMONARY DISEASE
  3. TYVASO [Concomitant]
     Active Substance: TREPROSTINIL
  4. AMBRISENTAN [Suspect]
     Active Substance: AMBRISENTAN
     Indication: SCLERODERMA

REACTIONS (1)
  - Dyspnoea [Unknown]
